FAERS Safety Report 9463970 (Version 1)
Quarter: 2013Q3

REPORT INFORMATION
  Report Type: Spontaneous
  Country: US (occurrence: US)
  Receive Date: 20130819
  Receipt Date: 20130819
  Transmission Date: 20140515
  Serious: No
  Sender: FDA-Public Use
  Company Number: US-BRISTOL-MYERS SQUIBB COMPANY-16927568

PATIENT
  Age: 57 Year
  Sex: Male
  Weight: 63.49 kg

DRUGS (1)
  1. REYATAZ CAPS 300 MG [Suspect]
     Dosage: TAKEN AT 9AM
     Dates: start: 20040522

REACTIONS (2)
  - Incorrect product storage [Unknown]
  - Weight decreased [Unknown]
